FAERS Safety Report 9311928 (Version 1)
Quarter: 2013Q2

REPORT INFORMATION
  Report Type: Spontaneous
  Country: GB (occurrence: GB)
  Receive Date: 20130528
  Receipt Date: 20130528
  Transmission Date: 20140414
  Serious: Yes (Hospitalization)
  Sender: FDA-Public Use
  Company Number: GB-JNJFOC-20130510541

PATIENT
  Age: 21 Year
  Sex: Male

DRUGS (7)
  1. PARACETAMOL [Suspect]
     Route: 065
  2. PARACETAMOL [Suspect]
     Indication: PRODUCT USED FOR UNKNOWN INDICATION
     Route: 065
  3. NEFOPAM [Suspect]
     Indication: PRODUCT USED FOR UNKNOWN INDICATION
  4. ASPIRIN [Suspect]
     Indication: PRODUCT USED FOR UNKNOWN INDICATION
     Route: 065
  5. ZOPICLONE [Suspect]
     Indication: PRODUCT USED FOR UNKNOWN INDICATION
     Route: 065
  6. DIHYDROCODEINE [Suspect]
     Indication: PRODUCT USED FOR UNKNOWN INDICATION
     Route: 065
  7. LIDOCAINE [Suspect]
     Indication: PRODUCT USED FOR UNKNOWN INDICATION

REACTIONS (8)
  - Convulsion [Recovered/Resolved]
  - Body temperature decreased [Recovered/Resolved]
  - Depressed level of consciousness [Recovered/Resolved]
  - Agitation [Recovered/Resolved]
  - Cold sweat [Recovered/Resolved]
  - Blood pressure increased [Recovered/Resolved]
  - Pallor [Recovered/Resolved]
  - Tachycardia [Recovered/Resolved]
